FAERS Safety Report 8032577-1 (Version None)
Quarter: 2012Q1

REPORT INFORMATION
  Report Type: 
  Country: None (occurrence: None)
  Receive Date: 20120110
  Receipt Date: 20120109
  Transmission Date: 20120608
  Serious: Yes (Life-Threatening, Hospitalization)
  Sender: FDA-Public Use
  Company Number: DK-TEVA-314897ISR

PATIENT
  Sex: Male
  Weight: 93 kg

DRUGS (4)
  1. BACLOFEN [Suspect]
     Indication: MULTIPLE SCLEROSIS
     Route: 048
  2. BACLOFEN [Suspect]
  3. MIRTAZAPINE [Suspect]
  4. ESCITALOPRAM [Suspect]

REACTIONS (7)
  - RESPIRATORY ACIDOSIS [None]
  - SUICIDE ATTEMPT [None]
  - SINUS BRADYCARDIA [None]
  - MUSCLE SPASMS [None]
  - CONVULSION [None]
  - INTENTIONAL OVERDOSE [None]
  - COMA [None]
